FAERS Safety Report 7043399-2 (Version None)
Quarter: 2010Q3

REPORT INFORMATION
  Report Type: 
  Country: None (occurrence: None)
  Receive Date: 20100929
  Receipt Date: 20100607
  Transmission Date: 20110219
  Serious: Yes (Hospitalization)
  Sender: FDA-Public Use
  Company Number: US-WYE-H15532910

PATIENT
  Age: 17 Year
  Sex: Female
  Weight: 43.13 kg

DRUGS (1)
  1. PRISTIQ [Suspect]
     Indication: DEPRESSION
     Dosage: 50 MG 1X PER 1 TOT, ORAL
     Route: 048
     Dates: start: 20100603, end: 20100604

REACTIONS (1)
  - HEPATIC ENZYME INCREASED [None]
